FAERS Safety Report 22349166 (Version 1)
Quarter: 2023Q2

REPORT INFORMATION
  Report Type: Spontaneous
  Country: HR (occurrence: None)
  Receive Date: 20230522
  Receipt Date: 20230522
  Transmission Date: 20230721
  Serious: Yes (Other)
  Sender: FDA-Public Use
  Company Number: HR-ROCHE-3353912

PATIENT
  Age: 15 Year
  Sex: Male

DRUGS (1)
  1. RIVOTRIL [Suspect]
     Active Substance: CLONAZEPAM
     Indication: Product used for unknown indication
     Route: 048
     Dates: start: 20230329, end: 20230329

REACTIONS (3)
  - Suicidal ideation [Unknown]
  - Bradykinesia [Unknown]
  - Somnolence [Unknown]

NARRATIVE: CASE EVENT DATE: 20230329
